FAERS Safety Report 20564554 (Version 1)
Quarter: 2022Q1

REPORT INFORMATION
  Report Type: Spontaneous
  Country: US (occurrence: US)
  Receive Date: 20220308
  Receipt Date: 20220308
  Transmission Date: 20220424
  Serious: No
  Sender: FDA-Public Use
  Company Number: US-LEO Pharma-341314

PATIENT
  Sex: Male

DRUGS (1)
  1. FINACEA [Suspect]
     Active Substance: AZELAIC ACID
     Indication: Product used for unknown indication
     Dosage: HAS BEEN USING THIS PRODUCT FOR A YEAR

REACTIONS (1)
  - Swelling face [Unknown]
